FAERS Safety Report 5752726-5 (Version None)
Quarter: 2008Q2

REPORT INFORMATION
  Report Type: 
  Country: None (occurrence: None)
  Receive Date: 20080527
  Receipt Date: 20080527
  Transmission Date: 20081010
  Serious: Yes (Other)
  Sender: FDA-Public Use
  Company Number: None

PATIENT
  Sex: Female
  Weight: 0.96 kg

DRUGS (2)
  1. IBUPROFEN [Suspect]
     Indication: PATENT DUCTUS ARTERIOSUS
     Dosage: 10 MG/KG ONCE IV;  5 MG/KG Q 24 HOURS X 2 IV
     Route: 042
     Dates: start: 20080521, end: 20080521
  2. IBUPROFEN [Suspect]
     Indication: PATENT DUCTUS ARTERIOSUS
     Dosage: 10 MG/KG ONCE IV;  5 MG/KG Q 24 HOURS X 2 IV
     Route: 042
     Dates: start: 20080522, end: 20080523

REACTIONS (2)
  - CONDITION AGGRAVATED [None]
  - HYPERBILIRUBINAEMIA [None]
